FAERS Safety Report 15527033 (Version 8)
Quarter: 2019Q3

REPORT INFORMATION
  Report Type: Report from Study
  Country: CA (occurrence: CA)
  Receive Date: 20181018
  Receipt Date: 20190725
  Transmission Date: 20191004
  Serious: Yes (Hospitalization)
  Sender: FDA-Public Use
  Company Number: PHHO2018CA011200

PATIENT
  Age: 6 Year
  Sex: Male

DRUGS (15)
  1. VINCRISTINE [Concomitant]
     Active Substance: VINCRISTINE
     Indication: LEUKAEMIA
     Dosage: 1.4 MG, UNK
     Route: 042
     Dates: start: 20180828
  2. SULFAMETHOXAZOLE AND TRIMETHOPRIM [Concomitant]
     Active Substance: SULFAMETHOXAZOLE\TRIMETHOPRIM
     Indication: PNEUMOCYSTIS JIROVECII PNEUMONIA
     Dosage: 120 MG, DAILY ON FRIDAY, SATURDAY, SUNDAY
     Route: 048
     Dates: start: 20180824
  3. LEVOFLOXACIN. [Concomitant]
     Active Substance: LEVOFLOXACIN
     Indication: INFECTION PROPHYLAXIS
     Dosage: 250 MG, QD
     Route: 048
     Dates: start: 20180829
  4. ONDANSETRON [Concomitant]
     Active Substance: ONDANSETRON
     Indication: NAUSEA
     Dosage: 4.7 MG, Q12H
     Route: 042
     Dates: start: 20181010
  5. CYTARABIN [Concomitant]
     Active Substance: CYTARABINE
     Indication: LEUKAEMIA
     Dosage: 70 MG, UNK
     Route: 037
     Dates: start: 20180823
  6. METHOTREXATE. [Suspect]
     Active Substance: METHOTREXATE
     Indication: LEUKAEMIA
     Dosage: 12 MG, UNK
     Route: 037
     Dates: start: 20180828, end: 20180927
  7. ETOPOSIDE. [Suspect]
     Active Substance: ETOPOSIDE
     Indication: LEUKAEMIA
     Dosage: 92 MG, OVER 2 HOURS
     Route: 042
     Dates: start: 20181015
  8. FLUCONAZOLE. [Concomitant]
     Active Substance: FLUCONAZOLE
     Indication: INFECTION PROPHYLAXIS
     Dosage: 125 MG, QD
     Route: 048
     Dates: start: 20180927
  9. ONDANSETRON [Concomitant]
     Active Substance: ONDANSETRON
     Indication: VOMITING
  10. TISAGENLECLEUCEL. [Suspect]
     Active Substance: TISAGENLECLEUCEL
     Indication: ACUTE LYMPHOCYTIC LEUKAEMIA
     Dosage: 24 ML, OVER 15 MINSUNK
     Route: 041
     Dates: start: 20181203, end: 20190329
  11. CYCLOPHOSPHAMIDE. [Suspect]
     Active Substance: CYCLOPHOSPHAMIDE
     Indication: LEUKAEMIA
     Dosage: 400 MG,
     Route: 042
     Dates: start: 20181015
  12. CASPOFUNGIN [Concomitant]
     Active Substance: CASPOFUNGIN
     Indication: PROPHYLAXIS
     Dosage: 279.14 ML, QD
     Route: 042
     Dates: start: 20181031
  13. METHOTREXATE. [Suspect]
     Active Substance: METHOTREXATE
     Dosage: 140 MG
     Route: 042
     Dates: start: 20180907
  14. POTASSIUM CHLORIDE. [Concomitant]
     Active Substance: POTASSIUM CHLORIDE
     Indication: HYPOKALAEMIA
     Dosage: 96 ML/HR CONTINOUSLY
     Route: 042
     Dates: start: 20181031
  15. FLUDARABINE [Concomitant]
     Active Substance: FLUDARABINE PHOSPHATE
     Indication: CHEMOTHERAPY
     Dosage: 26.5 MG, 4 DOSES
     Dates: start: 20181123

REACTIONS (20)
  - Depressed level of consciousness [Recovered/Resolved]
  - Pyrexia [Recovered/Resolved]
  - Perineal infection [Recovered/Resolved]
  - Device related infection [Recovered/Resolved]
  - Blood fibrinogen decreased [Recovered/Resolved]
  - Bacteraemia [Recovered/Resolved]
  - Bacterial infection [Recovered/Resolved]
  - Confusional state [Recovered/Resolved]
  - Encephalopathy [Recovered/Resolved]
  - Left ventricular dysfunction [Recovering/Resolving]
  - Cellulitis [Recovered/Resolved]
  - Sepsis [Recovered/Resolved]
  - Pyrexia [Recovered/Resolved]
  - Neutropenia [Recovered/Resolved]
  - Pyrexia [Recovered/Resolved]
  - Pyrexia [Recovered/Resolved]
  - Pyrexia [Recovered/Resolved]
  - Agitation [Recovered/Resolved]
  - Cytokine release syndrome [Recovered/Resolved]
  - Neutropenia [Recovered/Resolved]

NARRATIVE: CASE EVENT DATE: 20181010
